FAERS Safety Report 13177529 (Version 1)
Quarter: 2017Q1

REPORT INFORMATION
  Report Type: Report from Study
  Country: US (occurrence: US)
  Receive Date: 20170201
  Receipt Date: 20170201
  Transmission Date: 20170428
  Serious: No
  Sender: FDA-Public Use
  Company Number: US-EXELIXIS-CABO-16006449

PATIENT
  Sex: Male

DRUGS (2)
  1. COMETRIQ [Suspect]
     Active Substance: CABOZANTINIB S-MALATE
     Indication: BRAIN NEOPLASM MALIGNANT
     Dosage: 60 MG, QD
     Route: 048
     Dates: start: 20160422, end: 201605
  2. COMETRIQ [Suspect]
     Active Substance: CABOZANTINIB S-MALATE
     Indication: BRAIN OEDEMA

REACTIONS (6)
  - Swollen tongue [Not Recovered/Not Resolved]
  - Off label use [Unknown]
  - Hypophagia [Unknown]
  - Nausea [Unknown]
  - Tongue ulceration [Unknown]
  - Stomatitis [Unknown]
